FAERS Safety Report 10060399 (Version 2)
Quarter: 2014Q2

REPORT INFORMATION
  Report Type: Report from Study
  Country: US (occurrence: US)
  Receive Date: 20140404
  Receipt Date: 20140404
  Transmission Date: 20141212
  Serious: Yes (Other)
  Sender: FDA-Public Use
  Company Number: US-ABBVIE-14P-163-1198231-00

PATIENT
  Age: 60 Year
  Sex: Female
  Weight: 51.76 kg

DRUGS (8)
  1. DEPAKOTE ER [Suspect]
     Indication: CONVULSION
     Dates: start: 1971
  2. DIVALPROEX SODIUM ER [Suspect]
     Indication: PRODUCT USED FOR UNKNOWN INDICATION
  3. LAMOTRIGINE [Suspect]
     Indication: CONVULSION
     Dosage: EXTENDED RELEASE
     Route: 048
     Dates: start: 2004
  4. LAMOTRIGINE [Suspect]
     Indication: CONVULSION
     Dosage: (GENERIC)
     Route: 048
     Dates: start: 2013
  5. LAMICTAL [Concomitant]
     Indication: PRODUCT USED FOR UNKNOWN INDICATION
  6. SEROQUEL [Concomitant]
     Indication: PRODUCT USED FOR UNKNOWN INDICATION
  7. VALPROATE SEMISODIUM [Concomitant]
     Indication: PRODUCT USED FOR UNKNOWN INDICATION
  8. QUETIAPINE [Concomitant]
     Indication: PRODUCT USED FOR UNKNOWN INDICATION

REACTIONS (12)
  - Convulsion [Not Recovered/Not Resolved]
  - Tooth extraction [Not Recovered/Not Resolved]
  - Bone loss [Not Recovered/Not Resolved]
  - Tooth fracture [Not Recovered/Not Resolved]
  - Gingivitis [Not Recovered/Not Resolved]
  - Gingival swelling [Not Recovered/Not Resolved]
  - Gingival inflammation [Not Recovered/Not Resolved]
  - Tooth fracture [Not Recovered/Not Resolved]
  - Drug ineffective [Not Recovered/Not Resolved]
  - Gingival disorder [Not Recovered/Not Resolved]
  - Gingival bleeding [Not Recovered/Not Resolved]
  - Tooth disorder [Not Recovered/Not Resolved]
